FAERS Safety Report 5559818-4 (Version None)
Quarter: 2007Q4

REPORT INFORMATION
  Report Type: 
  Country: None (occurrence: None)
  Receive Date: 20071214
  Receipt Date: 20071026
  Transmission Date: 20080405
  Serious: No
  Sender: FDA-Public Use
  Company Number: US-ABBOTT-07P-163-0421551-00

PATIENT
  Sex: Male
  Weight: 76.726 kg

DRUGS (2)
  1. HUMIRA [Suspect]
     Indication: CROHN'S DISEASE
     Route: 058
     Dates: start: 20071015, end: 20071015
  2. HUMIRA [Suspect]
     Route: 058
     Dates: start: 20071029

REACTIONS (11)
  - COUGH [None]
  - FEELING COLD [None]
  - HEADACHE [None]
  - NASAL CONGESTION [None]
  - NASAL DISCOMFORT [None]
  - ORAL HERPES [None]
  - PHARYNGEAL ERYTHEMA [None]
  - PHARYNGOLARYNGEAL PAIN [None]
  - RHINORRHOEA [None]
  - THROAT IRRITATION [None]
  - VIRAL INFECTION [None]
